FAERS Safety Report 13320318 (Version 3)
Quarter: 2017Q2

REPORT INFORMATION
  Report Type: Spontaneous
  Country: US (occurrence: US)
  Receive Date: 20170310
  Receipt Date: 20170613
  Transmission Date: 20170830
  Serious: Yes (Disabling, Other)
  Sender: FDA-Public Use
  Company Number: US-REGENERON PHARMACEUTICALS, INC.-2017-12728

PATIENT

DRUGS (5)
  1. LUCENTIS [Suspect]
     Active Substance: RANIBIZUMAB
     Indication: NEOVASCULAR AGE-RELATED MACULAR DEGENERATION
     Dosage: LEFT EYE, 20 DOSES
     Route: 031
  2. EYLEA [Suspect]
     Active Substance: AFLIBERCEPT
     Dosage: 0.05 ML MILLILITRE(S), FIRST INJECTION IN THE RIGHT EYE, EVERY 5 TO 6 WEEKS
     Route: 031
     Dates: start: 20160524, end: 20160524
  3. AVASTIN [Suspect]
     Active Substance: BEVACIZUMAB
     Indication: NEOVASCULAR AGE-RELATED MACULAR DEGENERATION
     Dosage: LEFT EYE, 2 DOSES
     Route: 031
  4. EYLEA [Suspect]
     Active Substance: AFLIBERCEPT
     Indication: NEOVASCULAR AGE-RELATED MACULAR DEGENERATION
     Dosage: 0.05 ML, UNK, IN LEFT EYE
     Route: 031
     Dates: start: 20130513, end: 20160422
  5. EYLEA [Suspect]
     Active Substance: AFLIBERCEPT
     Dosage: 0.05 ML MILLILITRE(S), LEFT EYE, EVERY 5 TO 6 WEEKS
     Route: 031

REACTIONS (4)
  - Endophthalmitis [Not Recovered/Not Resolved]
  - Blindness unilateral [Not Recovered/Not Resolved]
  - Vitrectomy [Unknown]
  - Intraocular pressure increased [Not Recovered/Not Resolved]

NARRATIVE: CASE EVENT DATE: 20160524
